FAERS Safety Report 16960918 (Version 1)
Quarter: 2019Q4

REPORT INFORMATION
  Report Type: Spontaneous
  Country: US (occurrence: US)
  Receive Date: 20191025
  Receipt Date: 20191025
  Transmission Date: 20200122
  Serious: No
  Sender: FDA-Public Use
  Company Number: US-PFIZER INC-2019456496

PATIENT
  Age: 68 Year
  Sex: Female
  Weight: 68.4 kg

DRUGS (2)
  1. ALPRAZOLAM. [Suspect]
     Active Substance: ALPRAZOLAM
     Indication: ANXIETY
     Dosage: 1/2 DF, UNK (ONE IN THE DAYTIME IF NEEDED)
  2. ALPRAZOLAM. [Suspect]
     Active Substance: ALPRAZOLAM
     Indication: PANIC ATTACK
     Dosage: 1 MG, 1X/DAY(PER NIGHT)
     Route: 048

REACTIONS (9)
  - Headache [Unknown]
  - Therapeutic product effect variable [Unknown]
  - Sleep terror [Recovered/Resolved]
  - Product physical issue [Unknown]
  - Poor quality product administered [Unknown]
  - Intentional product misuse [Unknown]
  - Drug ineffective [Unknown]
  - Hangover [Unknown]
  - Abnormal dreams [Unknown]

NARRATIVE: CASE EVENT DATE: 20191016
